FAERS Safety Report 8334762-8 (Version None)
Quarter: 2012Q2

REPORT INFORMATION
  Report Type: 
  Country: None (occurrence: None)
  Receive Date: 20120503
  Receipt Date: 20120426
  Transmission Date: 20120825
  Serious: Yes (Hospitalization)
  Sender: FDA-Public Use
  Company Number: BE-B.I. PHARMACEUTICALS,INC./RIDGEFIELD-2012-BL-00289BL

PATIENT
  Sex: Male
  Weight: 97 kg

DRUGS (8)
  1. CORDARONE [Concomitant]
     Dosage: 200 MG
     Dates: start: 19930101
  2. ALDACTONE [Concomitant]
     Dosage: 50 MG
     Dates: start: 20091203
  3. BUMETANIDE [Concomitant]
     Dosage: 5 MG
  4. PRADAXA [Suspect]
     Indication: ATRIAL FIBRILLATION
     Dosage: 300 MG
     Route: 048
     Dates: start: 20111213
  5. METOPROLOL SUCCINATE [Concomitant]
     Dosage: 100 MG
  6. PANTOPRAZOLE [Concomitant]
     Dosage: 80 MG
  7. CARDIOASPIRINE [Concomitant]
     Dosage: 100 MG
     Dates: start: 20091216
  8. METFORMIN HCL [Concomitant]
     Dosage: 1700 MG
     Dates: start: 20100301

REACTIONS (3)
  - ATRIAL FIBRILLATION [None]
  - ABDOMINAL DISCOMFORT [None]
  - INTRACARDIAC THROMBUS [None]
